FAERS Safety Report 8020584-4 (Version None)
Quarter: 2012Q1

REPORT INFORMATION
  Report Type: 
  Country: None (occurrence: None)
  Receive Date: 20120103
  Receipt Date: 20111223
  Transmission Date: 20120608
  Serious: Yes (Death, Hospitalization)
  Sender: FDA-Public Use
  Company Number: FR-CELGENEUS-056-21880-11123324

PATIENT
  Sex: Female

DRUGS (10)
  1. REVLIMID [Suspect]
     Route: 048
     Dates: start: 20111212
  2. AMOXICILLIN TRIHYDRATE [Concomitant]
     Indication: PROPHYLAXIS
     Route: 048
     Dates: start: 20111028
  3. BORTEZOMIB [Suspect]
     Route: 065
     Dates: start: 20111209
  4. DEXAMETHASONE [Suspect]
     Route: 065
     Dates: start: 20111210
  5. ASENTRA [Concomitant]
     Indication: PROPHYLAXIS
     Route: 058
     Dates: start: 20111129
  6. REVLIMID [Suspect]
     Route: 048
     Dates: start: 20111028
  7. BORTEZOMIB [Suspect]
     Route: 065
     Dates: start: 20111028
  8. DEXAMETHASONE [Suspect]
     Route: 065
     Dates: start: 20111028
  9. VALACYCLOVIR HYDROCHLORIDE [Concomitant]
     Indication: ANTIVIRAL PROPHYLAXIS
     Route: 048
     Dates: start: 20111028
  10. BACTRIM [Concomitant]
     Indication: PROPHYLAXIS
     Route: 048
     Dates: start: 20111002

REACTIONS (1)
  - SEPTIC SHOCK [None]
